FAERS Safety Report 4595515-X (Version None)
Quarter: 2005Q1

REPORT INFORMATION
  Report Type: 
  Country: None (occurrence: None)
  Receive Date: 20050224
  Receipt Date: 20050207
  Transmission Date: 20050727
  Serious: Yes (Other)
  Sender: FDA-Public Use
  Company Number: USA050290402

PATIENT
  Age: 65 Year
  Sex: Male

DRUGS (2)
  1. CYMBALTA [Suspect]
     Dosage: 60 MG
     Dates: start: 20041201, end: 20050101
  2. EFFEXOR [Concomitant]

REACTIONS (2)
  - JAUNDICE [None]
  - OCULAR ICTERUS [None]
